FAERS Safety Report 5372489-5 (Version None)
Quarter: 2007Q2

REPORT INFORMATION
  Report Type: 
  Country: None (occurrence: None)
  Receive Date: 20070627
  Receipt Date: 20070615
  Transmission Date: 20071010
  Serious: Yes (Hospitalization)
  Sender: FDA-Public Use
  Company Number: TW-ELI_LILLY_AND_COMPANY-TW200705006026

PATIENT
  Age: 55 Year
  Sex: Male
  Weight: 45 kg

DRUGS (11)
  1. PEMETREXED [Suspect]
     Indication: NEOPLASM MALIGNANT
     Dosage: 500 MG/M2, UNK
     Route: 042
     Dates: start: 20070510
  2. FOLIC ACID [Concomitant]
     Indication: PROPHYLAXIS
     Dosage: 5 MG, DAILY (1/D)
     Dates: start: 20070504
  3. VITAMIN B-12 [Concomitant]
     Indication: PROPHYLAXIS
     Dosage: 500 MEQ, UNK
     Dates: start: 20070504, end: 20070505
  4. DEXAMETHASONE 0.5MG TAB [Concomitant]
     Indication: PROPHYLAXIS
     Dosage: 4 MG, 2/D
     Dates: start: 20070509, end: 20070511
  5. CEFAMEZIN [Concomitant]
     Indication: WOUND INFECTION
     Dosage: 4 MG, UNK
     Dates: start: 20070428, end: 20070511
  6. GENTAMICIN [Concomitant]
     Indication: WOUND INFECTION
     Dosage: 120 MG, UNK
     Dates: start: 20070428, end: 20070509
  7. SENNOSIDE [Concomitant]
     Indication: CONSTIPATION
     Dosage: 40 MG, UNK
     Dates: start: 20070429, end: 20070522
  8. CIPROFLOXACIN HYDROCHLORIDE [Concomitant]
     Indication: PROPHYLAXIS
     Dosage: 40 MG, UNK
     Route: 048
     Dates: start: 20070512, end: 20070519
  9. CIPROFLOXACIN HYDROCHLORIDE [Concomitant]
     Dosage: 1000 MG, UNK
     Route: 048
     Dates: start: 20070518
  10. ACETAMINOPHEN [Concomitant]
     Indication: PYREXIA
     Dosage: 500 MG, UNK
     Dates: start: 20070511, end: 20070512
  11. CISPLATIN [Suspect]
     Indication: NEOPLASM MALIGNANT
     Dosage: 75 MG/M2, OTHER
     Route: 042
     Dates: start: 20070510

REACTIONS (3)
  - DIARRHOEA [None]
  - HYPOKALAEMIA [None]
  - PSEUDOMONAL SEPSIS [None]
